FAERS Safety Report 23925853 (Version 1)
Quarter: 2024Q2

REPORT INFORMATION
  Report Type: Spontaneous
  Country: US (occurrence: None)
  Receive Date: 20240531
  Receipt Date: 20240531
  Transmission Date: 20240715
  Serious: Yes (Hospitalization)
  Sender: FDA-Public Use
  Company Number: None

PATIENT
  Age: 57 Year
  Sex: Female

DRUGS (3)
  1. PANZYGA [Suspect]
     Active Substance: HUMAN IMMUNOGLOBULIN G
     Indication: Myasthenia gravis
     Dosage: 5GM EVERY 2 WEEKS INTRAVENOUS?
     Route: 042
     Dates: start: 20210923
  2. EPINEPRI-RINE [Concomitant]
  3. DEXTROSE [Concomitant]
     Active Substance: DEXTROSE\DEXTROSE MONOHYDRATE

REACTIONS (3)
  - Myasthenia gravis [None]
  - Dermatochalasis [None]
  - Dyspnoea [None]

NARRATIVE: CASE EVENT DATE: 20240525
